FAERS Safety Report 4757055-4 (Version None)
Quarter: 2005Q3

REPORT INFORMATION
  Report Type: 
  Country: None (occurrence: None)
  Receive Date: 20050831
  Receipt Date: 20050823
  Transmission Date: 20060218
  Serious: Yes (Hospitalization)
  Sender: FDA-Public Use
  Company Number: AU-BOEHRINGER INGELHEIM PHARMACEUTICALS, INC.-2005-BP-14812AU

PATIENT
  Sex: Female
  Weight: 76 kg

DRUGS (1)
  1. SPIRIVA [Suspect]
     Indication: RESPIRATORY DISORDER
     Route: 055
     Dates: start: 20041111, end: 20050128

REACTIONS (5)
  - ANOREXIA [None]
  - HEADACHE [None]
  - NAUSEA [None]
  - TACHYCARDIA [None]
  - VOMITING [None]
